FAERS Safety Report 8194291-1 (Version None)
Quarter: 2012Q1

REPORT INFORMATION
  Report Type: 
  Country: None (occurrence: None)
  Receive Date: 20120308
  Receipt Date: 20120305
  Transmission Date: 20120608
  Serious: Yes (Other)
  Sender: FDA-Public Use
  Company Number: US-PFIZER INC-2012058726

PATIENT
  Sex: Female
  Weight: 65.306 kg

DRUGS (3)
  1. LYRICA [Suspect]
     Indication: NEURALGIA
  2. HYDROCHLOROTHIAZIDE [Concomitant]
     Indication: BLOOD PRESSURE ABNORMAL
     Dosage: 25 MG, DAILY
  3. LYRICA [Suspect]
     Indication: NERVE INJURY
     Dosage: 75 MG, 2X/DAY
     Dates: start: 20120222

REACTIONS (1)
  - CHEST PAIN [None]
